FAERS Safety Report 23709074 (Version 2)
Quarter: 2024Q2

REPORT INFORMATION
  Report Type: Spontaneous
  Country: FR (occurrence: FR)
  Receive Date: 20240404
  Receipt Date: 20240423
  Transmission Date: 20240715
  Serious: Yes (Hospitalization, Other)
  Sender: FDA-Public Use
  Company Number: FR-TEVA-VS-3178132

PATIENT
  Age: 2 Year
  Sex: Female

DRUGS (15)
  1. VALGANCICLOVIR [Suspect]
     Active Substance: VALGANCICLOVIR
     Indication: Antiviral prophylaxis
     Route: 065
  2. TACROLIMUS [Suspect]
     Active Substance: TACROLIMUS
     Indication: Nephrotic syndrome
     Dosage: ADMINISTERED WITH A TROUGH LEVELS OF UP TO 10NG/ML
     Route: 048
  3. TACROLIMUS [Suspect]
     Active Substance: TACROLIMUS
     Indication: Nephrotic syndrome
     Dosage: DOSE WAS INCREASED TO TROUGH LEVELS OF UP TO 15NG/ML
     Route: 065
  4. TACROLIMUS [Suspect]
     Active Substance: TACROLIMUS
     Indication: Nephrotic syndrome
     Dosage: AT THE TIME OF INDUCTION
     Route: 065
  5. MYCOPHENOLATE MOFETIL [Suspect]
     Active Substance: MYCOPHENOLATE MOFETIL
     Indication: Nephrotic syndrome
     Route: 065
  6. OBINUTUZUMAB [Suspect]
     Active Substance: OBINUTUZUMAB
     Indication: Nephrotic syndrome
     Dosage: RECEIVED INFUSIONS AT DOSE OF 1G/1.73 M2
     Route: 065
  7. OBINUTUZUMAB [Suspect]
     Active Substance: OBINUTUZUMAB
     Indication: Nephrotic syndrome
     Dosage: AS A MAINTENANCE TREATMENT SHE FURTHER RECEIVED RE-INJECTIONS
     Route: 065
  8. PENTAMIDINE [Suspect]
     Active Substance: PENTAMIDINE
     Indication: Prophylaxis
     Route: 055
  9. DARATUMUMAB [Suspect]
     Active Substance: DARATUMUMAB
     Indication: Nephrotic syndrome
     Dosage: RECEIVED INFUSIONS AT DOSE OF 1G/1.73 M2
     Route: 065
  10. DARATUMUMAB [Suspect]
     Active Substance: DARATUMUMAB
     Indication: Nephrotic syndrome
     Dosage: AS A MAINTENANCE TREATMENT SHE FURTHER RECEIVED RE-INJECTIONS
     Route: 065
  11. THYMOGLOBULIN [Suspect]
     Active Substance: LAPINE T-LYMPHOCYTE IMMUNE GLOBULIN
     Indication: Nephrotic syndrome
     Route: 065
  12. COTRIMOXAZOLE [Concomitant]
     Active Substance: SULFAMETHOXAZOLE\TRIMETHOPRIM
     Indication: Prophylaxis
     Route: 065
  13. CYCLOSPORINE [Suspect]
     Active Substance: CYCLOSPORINE
     Indication: Nephrotic syndrome
     Route: 042
  14. METHYLPREDNISOLONE [Suspect]
     Active Substance: METHYLPREDNISOLONE
     Indication: Nephrotic syndrome
     Dosage: RECEIVED THREE PULSES ON DAY 6, 7 AND 8 OF TRANSPLANT
     Route: 065
  15. METHYLPREDNISOLONE [Suspect]
     Active Substance: METHYLPREDNISOLONE
     Indication: Nephrotic syndrome
     Route: 065

REACTIONS (4)
  - Drug ineffective [Unknown]
  - Hypogammaglobulinaemia [Recovered/Resolved]
  - Haematotoxicity [Unknown]
  - Pneumocystis jirovecii pneumonia [Recovered/Resolved]
